FAERS Safety Report 13464374 (Version 1)
Quarter: 2017Q2

REPORT INFORMATION
  Report Type: Spontaneous
  Country: US (occurrence: US)
  Receive Date: 20170420
  Receipt Date: 20170420
  Transmission Date: 20170830
  Serious: No
  Sender: FDA-Public Use
  Company Number: US-ROCHE-737825

PATIENT
  Age: 44 Year
  Sex: Female

DRUGS (1)
  1. ISOTRETINOIN [Suspect]
     Active Substance: ISOTRETINOIN
     Indication: ACANTHOSIS NIGRICANS
     Route: 065

REACTIONS (2)
  - Skin fissures [Unknown]
  - Dry skin [Unknown]
